FAERS Safety Report 5647405-9 (Version None)
Quarter: 2008Q1

REPORT INFORMATION
  Report Type: 
  Country: None (occurrence: None)
  Receive Date: 20080229
  Receipt Date: 20080229
  Transmission Date: 20080703
  Serious: Yes (Other)
  Sender: FDA-Public Use
  Company Number: None

PATIENT
  Sex: Female
  Weight: 105.2345 kg

DRUGS (1)
  1. METFORMIN HCL [Suspect]
     Dosage: BID 6 YRS AGO

REACTIONS (4)
  - COUGH [None]
  - DIZZINESS [None]
  - NAUSEA [None]
  - VOMITING [None]
